FAERS Safety Report 6380542-2 (Version None)
Quarter: 2009Q3

REPORT INFORMATION
  Report Type: 
  Country: None (occurrence: None)
  Receive Date: 20090929
  Receipt Date: 20090921
  Transmission Date: 20100115
  Serious: Yes (Other)
  Sender: FDA-Public Use
  Company Number: SE-WYE-G04488409

PATIENT
  Age: 37 Year
  Sex: Female

DRUGS (2)
  1. EFFEXOR [Suspect]
     Indication: DEPRESSION
     Dosage: UNKNOWN DOSE OF EFEXOR UNTIL JUNE-2009
  2. EFFEXOR [Suspect]
     Route: 048
     Dates: start: 20090601, end: 20090101

REACTIONS (3)
  - CLONIC CONVULSION [None]
  - LOSS OF CONSCIOUSNESS [None]
  - MUSCLE TWITCHING [None]
